FAERS Safety Report 24443932 (Version 3)
Quarter: 2024Q4

REPORT INFORMATION
  Report Type: Spontaneous
  Country: JP (occurrence: JP)
  Receive Date: 20241016
  Receipt Date: 20241125
  Transmission Date: 20250114
  Serious: Yes (Hospitalization, Other)
  Sender: PFIZER
  Company Number: JP-PFIZER INC-PV202400134132

PATIENT
  Age: 75 Year
  Sex: Female
  Weight: 57.2 kg

DRUGS (11)
  1. BESPONSA [Suspect]
     Active Substance: INOTUZUMAB OZOGAMICIN
     Indication: Acute lymphocytic leukaemia
     Dosage: 0.8 MG/M2, DAILY (CYCLE 1)
     Route: 041
     Dates: start: 20240307, end: 20240307
  2. BESPONSA [Suspect]
     Active Substance: INOTUZUMAB OZOGAMICIN
     Dosage: 0.5 MG/M2, DAILY (CYCLE 1)
     Route: 041
     Dates: start: 20240314, end: 20240314
  3. BESPONSA [Suspect]
     Active Substance: INOTUZUMAB OZOGAMICIN
     Dosage: 0.5 MG/M2, DAILY (CYCLE 1)
     Route: 041
     Dates: start: 20240321, end: 20240321
  4. BESPONSA [Suspect]
     Active Substance: INOTUZUMAB OZOGAMICIN
     Dosage: 0.5 MG/M2, DAILY (CYCLE 2)
     Route: 041
     Dates: start: 20240408, end: 20240408
  5. BESPONSA [Suspect]
     Active Substance: INOTUZUMAB OZOGAMICIN
     Dosage: 0.5 MG/M2, DAILY (CYCLE 2)
     Route: 041
     Dates: start: 20240415, end: 20240415
  6. BESPONSA [Suspect]
     Active Substance: INOTUZUMAB OZOGAMICIN
     Dosage: 0.5 MG/M2, DAILY (CYCLE 2)
     Route: 041
     Dates: start: 20240422, end: 20240422
  7. BESPONSA [Suspect]
     Active Substance: INOTUZUMAB OZOGAMICIN
     Dosage: 0.5 MG/M2, DAILY (CYCLE 3)
     Route: 041
     Dates: start: 20240508, end: 20240508
  8. BESPONSA [Suspect]
     Active Substance: INOTUZUMAB OZOGAMICIN
     Dosage: 0.5 MG/M2, DAILY (CYCLE 3)
     Route: 041
     Dates: start: 20240515, end: 20240515
  9. BESPONSA [Suspect]
     Active Substance: INOTUZUMAB OZOGAMICIN
     Dosage: 0.5 MG/M2, DAILY (CYCLE 3)
     Route: 041
     Dates: start: 20240522, end: 20240522
  10. ELDECALCITOL [Concomitant]
     Active Substance: ELDECALCITOL
     Indication: Osteoporosis
     Dosage: 0.75 UG (1 TABLET), 1X/DAY
  11. LANSOPRAZOLE [Concomitant]
     Active Substance: LANSOPRAZOLE
     Indication: Gastritis
     Dosage: 15 MG (1 TABLET), 1X/DAY

REACTIONS (1)
  - Hepatic necrosis [Not Recovered/Not Resolved]

NARRATIVE: CASE EVENT DATE: 20240601
